FAERS Safety Report 22604385 (Version 1)
Quarter: 2023Q2

REPORT INFORMATION
  Report Type: Spontaneous
  Country: US (occurrence: US)
  Receive Date: 20230615
  Receipt Date: 20230615
  Transmission Date: 20230721
  Serious: Yes (Hospitalization)
  Sender: FDA-Public Use
  Company Number: US-STRIDES ARCOLAB LIMITED-2023SP008599

PATIENT
  Age: 50 Year
  Sex: Female

DRUGS (6)
  1. COLCHICINE [Suspect]
     Active Substance: COLCHICINE
     Indication: Anal fistula
     Dosage: UNK
     Route: 065
  2. COLCHICINE [Suspect]
     Active Substance: COLCHICINE
     Indication: Abscess
  3. PREDNISOLONE [Suspect]
     Active Substance: PREDNISOLONE
     Indication: Anal fistula
     Dosage: UNK
     Route: 065
  4. PREDNISOLONE [Suspect]
     Active Substance: PREDNISOLONE
     Indication: Abscess
  5. INFLIXIMAB [Suspect]
     Active Substance: INFLIXIMAB
     Indication: Anal fistula
     Dosage: UNK
     Route: 065
  6. INFLIXIMAB [Suspect]
     Active Substance: INFLIXIMAB
     Indication: Abscess

REACTIONS (2)
  - Drug ineffective [Unknown]
  - Off label use [Unknown]
